FAERS Safety Report 9268599 (Version 2)
Quarter: 2013Q2

REPORT INFORMATION
  Report Type: Spontaneous
  Country: US (occurrence: US)
  Receive Date: 20130502
  Receipt Date: 20130531
  Transmission Date: 20140414
  Serious: Yes (Hospitalization, Other)
  Sender: FDA-Public Use
  Company Number: US-US-EMD SERONO, INC.-7208500

PATIENT
  Age: 43 Year
  Sex: Female

DRUGS (8)
  1. REBIF [Suspect]
     Indication: PRODUCT USED FOR UNKNOWN INDICATION
     Dates: start: 201203
  2. SOLU-MEDROL [Suspect]
     Indication: PRODUCT USED FOR UNKNOWN INDICATION
  3. PREDNISONE /00044702/ [Suspect]
     Indication: PRODUCT USED FOR UNKNOWN INDICATION
  4. AVONEX /05982701/ [Suspect]
     Indication: PRODUCT USED FOR UNKNOWN INDICATION
  5. TYSABRI [Suspect]
     Indication: MULTIPLE SCLEROSIS
     Route: 042
     Dates: start: 201204, end: 201204
  6. TYSABRI [Suspect]
     Route: 042
     Dates: start: 201208, end: 201208
  7. TYSABRI [Suspect]
     Route: 042
     Dates: start: 201209, end: 201209
  8. TYSABRI [Suspect]
     Route: 042
     Dates: start: 201211, end: 201211

REACTIONS (6)
  - Wheelchair user [Unknown]
  - Tooth disorder [Unknown]
  - Skin lesion [Unknown]
  - Asthenia [Unknown]
  - Fatigue [Unknown]
  - Multiple sclerosis relapse [Unknown]
